FAERS Safety Report 8278014-3 (Version None)
Quarter: 2012Q2

REPORT INFORMATION
  Report Type: 
  Country: None (occurrence: None)
  Receive Date: 20120412
  Receipt Date: 20001011
  Transmission Date: 20120825
  Serious: Yes (Other)
  Sender: FDA-Public Use
  Company Number: ES-ELI_LILLY_AND_COMPANY-EWC001008203

PATIENT
  Age: 32 Year
  Sex: Female

DRUGS (2)
  1. PARLODEL [Concomitant]
     Indication: LACTATION DISORDER
     Dosage: UNK, UNKNOWN
     Route: 048
     Dates: start: 19990714, end: 19990807
  2. FLUOXETINE HYDROCHLORIDE [Suspect]
     Dosage: 20 MG, DAILY (1/D)
     Route: 048
     Dates: start: 19990715

REACTIONS (1)
  - GALACTORRHOEA [None]
